FAERS Safety Report 10916278 (Version 1)
Quarter: 2015Q1

REPORT INFORMATION
  Report Type: Spontaneous
  Country: US (occurrence: US)
  Receive Date: 20150316
  Receipt Date: 20150316
  Transmission Date: 20150721
  Serious: Yes (Other)
  Sender: FDA-Public Use
  Company Number: US-CELGENE-USA-2015024308

PATIENT
  Age: 9 Year
  Sex: Male
  Weight: 36.5 kg

DRUGS (6)
  1. CELECOXIB. [Concomitant]
     Active Substance: CELECOXIB
     Indication: BRAIN NEOPLASM
     Route: 065
  2. ETOPOSIDE. [Concomitant]
     Active Substance: ETOPOSIDE
     Indication: BRAIN NEOPLASM
     Route: 065
  3. FENOFIBRATE. [Concomitant]
     Active Substance: FENOFIBRATE
     Indication: BRAIN NEOPLASM
     Route: 065
  4. CYCLOPHOSPHAMIDE. [Concomitant]
     Active Substance: CYCLOPHOSPHAMIDE
     Indication: BRAIN NEOPLASM
     Route: 065
  5. THALOMID [Suspect]
     Active Substance: THALIDOMIDE
     Route: 048
     Dates: start: 20150206, end: 20150304
  6. THALOMID [Suspect]
     Active Substance: THALIDOMIDE
     Indication: EPENDYMOMA
     Route: 048
     Dates: start: 201502

REACTIONS (3)
  - Eye movement disorder [Not Recovered/Not Resolved]
  - Dizziness [Not Recovered/Not Resolved]
  - Deafness [Recovering/Resolving]

NARRATIVE: CASE EVENT DATE: 20150214
